FAERS Safety Report 6208327-8 (Version None)
Quarter: 2009Q2

REPORT INFORMATION
  Report Type: 
  Country: None (occurrence: None)
  Receive Date: 20090529
  Receipt Date: 20090519
  Transmission Date: 20091009
  Serious: Yes (Death, Life-Threatening, Hospitalization)
  Sender: FDA-Public Use
  Company Number: DE-JNJFOC-20090501205

PATIENT
  Age: 40 Year
  Sex: Female

DRUGS (8)
  1. PARACETAMOL [Suspect]
     Route: 048
  2. PARACETAMOL [Suspect]
     Indication: DRUG USE FOR UNKNOWN INDICATION
     Route: 048
  3. CLEXANE [Suspect]
     Route: 058
  4. CLEXANE [Suspect]
     Indication: HOMOCYSTINAEMIA
     Route: 058
  5. BROMAZANIL [Suspect]
     Indication: DRUG USE FOR UNKNOWN INDICATION
     Route: 048
  6. DOXEPIN HCL [Suspect]
     Indication: DRUG USE FOR UNKNOWN INDICATION
     Route: 048
  7. CARBON MONOXIDE [Suspect]
     Indication: SUICIDE ATTEMPT
     Route: 055
  8. MARCUMAR [Suspect]
     Indication: HOMOCYSTINAEMIA

REACTIONS (5)
  - ACUTE RESPIRATORY DISTRESS SYNDROME [None]
  - COMPLETED SUICIDE [None]
  - DISSEMINATED INTRAVASCULAR COAGULATION [None]
  - MULTI-ORGAN FAILURE [None]
  - MULTIPLE DRUG OVERDOSE [None]
